FAERS Safety Report 4790276-3 (Version None)
Quarter: 2005Q4

REPORT INFORMATION
  Report Type: 
  Country: None (occurrence: None)
  Receive Date: 20051005
  Receipt Date: 20051005
  Transmission Date: 20060501
  Serious: Yes (Life-Threatening, Hospitalization)
  Sender: FDA-Public Use
  Company Number: None

PATIENT
  Sex: Male

DRUGS (11)
  1. WARFARIN [Suspect]
     Indication: DEEP VEIN THROMBOSIS
     Dosage: 5 MG PO DAILY
     Route: 048
  2. WARFARIN [Suspect]
     Indication: POST PROCEDURAL COMPLICATION
     Dosage: 5 MG PO DAILY
     Route: 048
  3. FUROSEMIDE [Concomitant]
  4. ALLOPURINOL [Concomitant]
  5. COLCHICINE [Concomitant]
  6. NEXIUM [Concomitant]
  7. COREG [Concomitant]
  8. POTASSIUM [Concomitant]
  9. ACETAMINOPHEN [Concomitant]
  10. CODEINE [Concomitant]
  11. LINEZOLID [Concomitant]

REACTIONS (4)
  - ENTEROCOCCAL INFECTION [None]
  - INTERNATIONAL NORMALISED RATIO INCREASED [None]
  - WOUND HAEMORRHAGE [None]
  - WOUND INFECTION [None]
